FAERS Safety Report 6234591-5 (Version None)
Quarter: 2009Q2

REPORT INFORMATION
  Report Type: 
  Country: None (occurrence: None)
  Receive Date: 20090616
  Receipt Date: 20090616
  Transmission Date: 20091009
  Serious: No
  Sender: FDA-Public Use
  Company Number: None

PATIENT
  Age: 48 Year
  Sex: Male
  Weight: 104.3273 kg

DRUGS (1)
  1. ZICAM COLD REMEDY NASAL GEL ZICAM LLC, SCOTTSDALE, ARIZONA [Suspect]
     Indication: SINUSITIS
     Dosage: ONE SPRAY EVERY 4 HOURS NASAL
     Route: 045
     Dates: start: 20090609, end: 20090611

REACTIONS (3)
  - AGEUSIA [None]
  - ANOSMIA [None]
  - DRUG INEFFECTIVE [None]
